FAERS Safety Report 19754583 (Version 1)
Quarter: 2021Q3

REPORT INFORMATION
  Report Type: Spontaneous
  Country: US (occurrence: US)
  Receive Date: 20210824
  Receipt Date: 20210824
  Transmission Date: 20211014
  Serious: Yes (Hospitalization)
  Sender: FDA-Public Use
  Company Number: None

PATIENT

DRUGS (1)
  1. MURI?LUBE [Suspect]
     Active Substance: LIGHT MINERAL OIL

REACTIONS (2)
  - Product appearance confusion [None]
  - Product label issue [None]
